FAERS Safety Report 9514665 (Version 1)
Quarter: 2013Q3

REPORT INFORMATION
  Report Type: Spontaneous
  Country: None (occurrence: None)
  Receive Date: 20130906
  Receipt Date: 20130906
  Transmission Date: 20140515
  Serious: Yes (Death, Hospitalization)
  Sender: FDA-Public Use
  Company Number: 2013/172

PATIENT
  Age: 80 Year
  Sex: Female

DRUGS (3)
  1. CEPHALEXIN [Suspect]
     Indication: URINARY TRACT INFECTION
     Route: 048
     Dates: start: 20130725
  2. BISOPROLOL (NO PREF. NAME) [Concomitant]
  3. WARFARIN (NO PREF. NAME) [Concomitant]

REACTIONS (9)
  - Headache [None]
  - Agitation [None]
  - Confusional state [None]
  - Dizziness [None]
  - Somnolence [None]
  - Lethargy [None]
  - Pneumonia [None]
  - Nervous system disorder [None]
  - CSF lymphocyte count abnormal [None]
